FAERS Safety Report 13742561 (Version 2)
Quarter: 2017Q3

REPORT INFORMATION
  Report Type: Spontaneous
  Country: SE (occurrence: SE)
  Receive Date: 20170711
  Receipt Date: 20170721
  Transmission Date: 20171127
  Serious: Yes (Other)
  Sender: FDA-Public Use
  Company Number: SE-ELI_LILLY_AND_COMPANY-SE201707002898

PATIENT
  Age: 84 Year
  Sex: Male

DRUGS (1)
  1. OLANZAPINE. [Suspect]
     Active Substance: OLANZAPINE
     Indication: RESTLESSNESS
     Dosage: 2.5 MG, UNKNOWN
     Route: 048
     Dates: start: 20170430, end: 20170530

REACTIONS (2)
  - Off label use [Unknown]
  - Diplopia [Not Recovered/Not Resolved]
